FAERS Safety Report 10480364 (Version 2)
Quarter: 2014Q4

REPORT INFORMATION
  Report Type: Spontaneous
  Country: GB (occurrence: GB)
  Receive Date: 20140929
  Receipt Date: 20141009
  Transmission Date: 20150528
  Serious: Yes (Other)
  Sender: FDA-Public Use
  Company Number: GB-JNJFOC-20140913642

PATIENT
  Age: 64 Year
  Sex: Female

DRUGS (4)
  1. PROCYCLIDINE [Concomitant]
     Active Substance: PROCYCLIDINE
     Route: 065
  2. RISPERDAL [Suspect]
     Active Substance: RISPERIDONE
     Indication: SCHIZOPHRENIA
     Dosage: 6 MG ONCE A DAY PLUS 2 MG AS NEEDED
     Route: 048
  3. CALCICHEW [Concomitant]
     Active Substance: CALCIUM CARBONATE
     Route: 065
  4. EXEMESTANE. [Concomitant]
     Active Substance: EXEMESTANE
     Route: 065

REACTIONS (1)
  - Colectomy [Unknown]

NARRATIVE: CASE EVENT DATE: 20140918
